FAERS Safety Report 11406715 (Version 3)
Quarter: 2015Q3

REPORT INFORMATION
  Report Type: Spontaneous
  Country: US (occurrence: US)
  Receive Date: 20150821
  Receipt Date: 20150924
  Transmission Date: 20151125
  Serious: No
  Sender: FDA-Public Use
  Company Number: US-PFIZER INC-2015268137

PATIENT
  Age: 63 Year
  Sex: Female

DRUGS (2)
  1. IBRANCE [Suspect]
     Active Substance: PALBOCICLIB
     Indication: MALIGNANT NIPPLE NEOPLASM
     Dosage: 125 MG, CYCLIC (ON DAYS 1-21 EVERY 28 DAYS)
     Route: 048
  2. IBRANCE [Suspect]
     Active Substance: PALBOCICLIB
     Dosage: 100 MG, CYCLIC (ON DAYS 1-21 OF 28 DAY CYCLE)
     Route: 048

REACTIONS (5)
  - Oral pain [Unknown]
  - Stomatitis [Recovering/Resolving]
  - White blood cell count decreased [Recovering/Resolving]
  - Platelet disorder [Unknown]
  - Epistaxis [Recovered/Resolved]
